FAERS Safety Report 15712690 (Version 1)
Quarter: 2018Q4

REPORT INFORMATION
  Report Type: Spontaneous
  Country: US (occurrence: US)
  Receive Date: 20181129
  Receipt Date: 20181129
  Transmission Date: 20190205
  Serious: No
  Sender: FDA-Public Use
  Company Number: None

PATIENT
  Age: 9 Year
  Sex: Male

DRUGS (1)
  1. CATHFLO ACTIVASE [Suspect]
     Active Substance: ALTEPLASE
     Route: 055

REACTIONS (5)
  - Intentional product use issue [None]
  - Product dose omission [None]
  - Malaise [None]
  - Sensitivity to weather change [None]
  - Pulmonary congestion [None]

NARRATIVE: CASE EVENT DATE: 20181128
